FAERS Safety Report 11407535 (Version 1)
Quarter: 2015Q3

REPORT INFORMATION
  Report Type: Spontaneous
  Country: US (occurrence: US)
  Receive Date: 20150821
  Receipt Date: 20150821
  Transmission Date: 20151125
  Serious: Yes (Other)
  Sender: FDA-Public Use
  Company Number: US-NOVOPROD-417873

PATIENT
  Age: 58 Year
  Sex: Male
  Weight: 133.33 kg

DRUGS (6)
  1. VENLAFAXINE HCL [Concomitant]
     Active Substance: VENLAFAXINE HYDROCHLORIDE
     Dosage: 100 MG, QD
     Route: 048
  2. OMEPRAZOLE. [Concomitant]
     Active Substance: OMEPRAZOLE
     Dosage: 20 MG, QD
  3. ISOSORBIDE MONONITRATE. [Concomitant]
     Active Substance: ISOSORBIDE MONONITRATE
     Dosage: 30 MG ER QD
     Route: 048
  4. VICTOZA [Suspect]
     Active Substance: LIRAGLUTIDE
     Indication: TYPE 2 DIABETES MELLITUS
     Dosage: 1.2 MG, QD
     Route: 058
     Dates: start: 201404, end: 201407
  5. ALPRAZOLAM. [Concomitant]
     Active Substance: ALPRAZOLAM
     Dosage: 1 MG, QD
     Route: 048
  6. INDOMETHACIN                       /00003801/ [Concomitant]
     Active Substance: INDOMETHACIN
     Dosage: 75 MG ER QD
     Route: 048

REACTIONS (1)
  - Pancreatitis [Recovered/Resolved]

NARRATIVE: CASE EVENT DATE: 2014
